FAERS Safety Report 8839232 (Version 1)
Quarter: 2012Q4

REPORT INFORMATION
  Report Type: Report from Study
  Country: CA (occurrence: CA)
  Receive Date: 20121015
  Receipt Date: 20121015
  Transmission Date: 20130627
  Serious: Yes (Hospitalization)
  Sender: FDA-Public Use
  Company Number: CA-JNJFOC-20121002705

PATIENT
  Age: 14 Year
  Sex: Male
  Weight: 40 kg

DRUGS (3)
  1. REMICADE [Suspect]
     Indication: CROHN^S DISEASE
     Route: 042
     Dates: start: 20090622, end: 20120906
  2. CIPRO [Concomitant]
     Route: 065
  3. FLAGYL [Concomitant]
     Route: 065

REACTIONS (4)
  - Fistula [Unknown]
  - Therapeutic response decreased [Unknown]
  - Crohn^s disease [Unknown]
  - Weight decreased [Unknown]
